FAERS Safety Report 10553767 (Version 1)
Quarter: 2014Q4

REPORT INFORMATION
  Report Type: Spontaneous
  Country: US (occurrence: None)
  Receive Date: 20141023
  Receipt Date: 20141023
  Transmission Date: 20150529
  Serious: No
  Sender: FDA-Public Use
  Company Number: AP356-01299-SPO-US

PATIENT
  Age: 79 Year
  Sex: Female
  Weight: 96 kg

DRUGS (7)
  1. BELVIQ [Suspect]
     Active Substance: LORCASERIN HYDROCHLORIDE
     Indication: WEIGHT DECREASED
     Route: 048
     Dates: start: 201406
  2. VYTORIN (INEGY) [Concomitant]
  3. LISINOPRIL. [Concomitant]
     Active Substance: LISINOPRIL
  4. BYETTA (EXENATIDE) [Concomitant]
  5. METFORMIN [Concomitant]
     Active Substance: METFORMIN HYDROCHLORIDE
  6. LISINOPRIL AND HYDROCHLOROTHIAZIDE [Concomitant]
     Active Substance: HYDROCHLOROTHIAZIDE\LISINOPRIL
  7. EYE VITAMIN (THERAGRAN [Concomitant]

REACTIONS (3)
  - Cystitis [None]
  - Alopecia [None]
  - Oedema peripheral [None]

NARRATIVE: CASE EVENT DATE: 201408
